FAERS Safety Report 9305562 (Version 3)
Quarter: 2013Q3

REPORT INFORMATION
  Report Type: Report from Study
  Country: JP (occurrence: JP)
  Receive Date: 20130523
  Receipt Date: 20130826
  Transmission Date: 20140515
  Serious: Yes (Other)
  Sender: FDA-Public Use
  Company Number: JP-ROCHE-1227511

PATIENT
  Age: 68 Year
  Sex: Male

DRUGS (9)
  1. METHOXY POLYETHYLENE GLYCOL-EPOETIN BETA [Suspect]
     Indication: NEPHROGENIC ANAEMIA
     Route: 042
     Dates: start: 20120220, end: 20120220
  2. METHOXY POLYETHYLENE GLYCOL-EPOETIN BETA [Suspect]
     Indication: NEPHROGENIC ANAEMIA
     Route: 042
     Dates: start: 20120319, end: 20120319
  3. METHOXY POLYETHYLENE GLYCOL-EPOETIN BETA [Suspect]
     Indication: NEPHROGENIC ANAEMIA
     Route: 042
     Dates: start: 20120416, end: 20120416
  4. METHOXY POLYETHYLENE GLYCOL-EPOETIN BETA [Suspect]
     Indication: NEPHROGENIC ANAEMIA
     Route: 042
     Dates: start: 20120521, end: 20120604
  5. ASPENONE [Concomitant]
     Route: 048
  6. WARFARIN [Concomitant]
     Route: 048
  7. THYRADIN-S [Concomitant]
     Route: 048
  8. DIOVAN [Concomitant]
     Route: 048
  9. MADOPAR [Concomitant]
     Route: 048

REACTIONS (3)
  - Platelet count decreased [Recovered/Resolved]
  - Haemoglobin decreased [Recovering/Resolving]
  - Purpura [Unknown]
